FAERS Safety Report 23308280 (Version 1)
Quarter: 2023Q4

REPORT INFORMATION
  Report Type: Spontaneous
  Country: US (occurrence: None)
  Receive Date: 20231216
  Receipt Date: 20231216
  Transmission Date: 20240110
  Serious: Yes (Disabling)
  Sender: FDA-Public Use
  Company Number: None

PATIENT
  Age: 34 Year
  Sex: Female
  Weight: 65.25 kg

DRUGS (1)
  1. TOPIRAMATE [Suspect]
     Active Substance: TOPIRAMATE
     Indication: Weight decreased
     Dosage: OTHER QUANTITY : 1 TABLET(S);?
     Route: 048
     Dates: start: 20230915, end: 20231009

REACTIONS (10)
  - Depression [None]
  - Anxiety [None]
  - Aphasia [None]
  - Aphasia [None]
  - Heart rate increased [None]
  - Depressed level of consciousness [None]
  - Amnesia [None]
  - Irritability [None]
  - Anger [None]
  - Thinking abnormal [None]

NARRATIVE: CASE EVENT DATE: 20230921
